FAERS Safety Report 6336516-0 (Version None)
Quarter: 2009Q3

REPORT INFORMATION
  Report Type: 
  Country: None (occurrence: None)
  Receive Date: 20090901
  Receipt Date: 20090824
  Transmission Date: 20100115
  Serious: Yes (Other)
  Sender: FDA-Public Use
  Company Number: TW-ROCHE-643710

PATIENT
  Age: 50 Year
  Sex: Male

DRUGS (4)
  1. PEGASYS [Suspect]
     Indication: HEPATITIS C
     Dosage: FREQUENCY REPORTED AS QW
     Route: 058
     Dates: start: 20090414
  2. PEGASYS [Suspect]
     Dosage: FREQUENCY REPORTED AS QW, DOSE REDUCED
     Route: 058
  3. ROBATROL [Suspect]
     Indication: HEPATITIS C
     Dosage: FREQUENCY REPORTED AS PER DAY
     Route: 048
     Dates: start: 20090414
  4. ROBATROL [Suspect]
     Dosage: FREQUENCY REPORTED AS PER DAY, DOSE REDUCED
     Route: 048

REACTIONS (3)
  - EYE HAEMORRHAGE [None]
  - MYODESOPSIA [None]
  - VISION BLURRED [None]
